FAERS Safety Report 6387827-4 (Version None)
Quarter: 2009Q4

REPORT INFORMATION
  Report Type: 
  Country: None (occurrence: None)
  Receive Date: 20091005
  Receipt Date: 20090923
  Transmission Date: 20100525
  Serious: No
  Sender: FDA-Public Use
  Company Number: US-ELI_LILLY_AND_COMPANY-US200907004140

PATIENT
  Sex: Female
  Weight: 57.596 kg

DRUGS (8)
  1. FORTEO [Suspect]
     Indication: OSTEOPOROSIS
     Dosage: 20 UG, DAILY (1/D)
     Dates: start: 20090301, end: 20090701
  2. FORTEO [Suspect]
     Dosage: 20 UG, DAILY (1/D)
     Dates: start: 20090701
  3. HYDROCODONE [Concomitant]
     Indication: ARTHRITIS
  4. CELEBREX [Concomitant]
     Indication: JOINT SWELLING
     Dosage: 200 MG, 2/D
  5. NADOLOL [Concomitant]
     Indication: HYPERTENSION
  6. CRESTOR [Concomitant]
     Indication: HYPERTENSION
  7. GLUCOSAMINE [Concomitant]
  8. VICODIN [Concomitant]
     Dosage: UNK, 2/D

REACTIONS (1)
  - ARTHRALGIA [None]
